FAERS Safety Report 6970879-8 (Version None)
Quarter: 2010Q3

REPORT INFORMATION
  Report Type: 
  Country: None (occurrence: None)
  Receive Date: 20100908
  Receipt Date: 20100216
  Transmission Date: 20110219
  Serious: Yes (Death, Hospitalization)
  Sender: FDA-Public Use
  Company Number: B0673235A

PATIENT
  Age: 37 Year
  Sex: Male

DRUGS (3)
  1. LACOSAMIDE [Suspect]
     Dosage: 100MG TWICE PER DAY
     Route: 065
     Dates: start: 20091022, end: 20100116
  2. CONVULEX [Suspect]
     Indication: PRODUCT USED FOR UNKNOWN INDICATION
     Dosage: 1500MG SIX TIMES PER DAY
     Route: 065
  3. LAMOTRIGINE [Suspect]
     Indication: PRODUCT USED FOR UNKNOWN INDICATION
     Dosage: 100MG TWICE PER DAY
     Route: 065

REACTIONS (3)
  - BLOOD PRESSURE SYSTOLIC DECREASED [None]
  - CARDIAC ARREST [None]
  - VENTRICULAR FIBRILLATION [None]
